FAERS Safety Report 8800750 (Version 2)
Quarter: 2012Q4

REPORT INFORMATION
  Report Type: 
  Country: US (occurrence: US)
  Receive Date: 20120921
  Receipt Date: 20120927
  Transmission Date: 20130627
  Serious: Yes (Death)
  Sender: FDA-Public Use
  Company Number: US-PFIZER INC-2012233354

PATIENT
  Age: 59 Year
  Sex: Male

DRUGS (1)
  1. RAPAMUNE [Suspect]
     Indication: LIVER TRANSPLANT
     Dosage: 2 mg, daily
     Route: 048
     Dates: start: 20120126

REACTIONS (2)
  - Death [Fatal]
  - Off label use [Unknown]
